FAERS Safety Report 24291842 (Version 2)
Quarter: 2024Q4

REPORT INFORMATION
  Report Type: Spontaneous
  Country: US (occurrence: US)
  Receive Date: 20240906
  Receipt Date: 20241029
  Transmission Date: 20250115
  Serious: Yes (Death)
  Sender: PFIZER
  Company Number: US-PFIZER INC-202400250138

PATIENT
  Age: 67 Year
  Sex: Male
  Weight: 63.492 kg

DRUGS (5)
  1. BRAFTOVI [Suspect]
     Active Substance: ENCORAFENIB
     Indication: Colorectal cancer
     Dosage: 4 DF, DAILY (WANTED HIM TO TAKE LIKE FOUR A DAY)
     Route: 048
  2. BRAFTOVI [Suspect]
     Active Substance: ENCORAFENIB
     Dosage: 1 DF, DAILY (STARTED WITH ONE AND NEVER GOT BEYOND THAT)
     Route: 048
     Dates: end: 202405
  3. MORPHINE [Concomitant]
     Active Substance: MORPHINE
     Dosage: 1.75 ML (EVERY TWO HOURS)
     Route: 048
  4. MORPHINE [Concomitant]
     Active Substance: MORPHINE
     Dosage: 1.75 ML (EVERY HOUR)
     Route: 048
  5. ATIVAN [Concomitant]
     Active Substance: LORAZEPAM
     Dosage: WAS EVERY OTHER HOUR AND SHE THINKS THE DOSE WAS 0.75ML
     Route: 048

REACTIONS (7)
  - Neoplasm progression [Fatal]
  - Illness [Unknown]
  - Pain [Unknown]
  - Nausea [Unknown]
  - Asthenia [Unknown]
  - Condition aggravated [Unknown]
  - Intentional product misuse [Unknown]
